FAERS Safety Report 11892162 (Version 3)
Quarter: 2016Q1

REPORT INFORMATION
  Report Type: Spontaneous
  Country: US (occurrence: US)
  Receive Date: 20160106
  Receipt Date: 20160219
  Transmission Date: 20160526
  Serious: Yes (Life-Threatening, Hospitalization, Other)
  Sender: FDA-Public Use
  Company Number: US-009507513-1601USA000446

PATIENT
  Age: 73 Year
  Sex: Male

DRUGS (1)
  1. CUBICIN [Suspect]
     Active Substance: DAPTOMYCIN
     Indication: GRAFT INFECTION
     Dosage: UNK

REACTIONS (2)
  - Respiratory failure [Recovering/Resolving]
  - Eosinophilic pneumonia acute [Recovering/Resolving]
